FAERS Safety Report 18684261 (Version 1)
Quarter: 2020Q4

REPORT INFORMATION
  Report Type: Spontaneous
  Country: NO (occurrence: NO)
  Receive Date: 20201230
  Receipt Date: 20201230
  Transmission Date: 20210114
  Serious: Yes (Disabling)
  Sender: FDA-Public Use
  Company Number: NO-BAYER-2020-285023

PATIENT

DRUGS (2)
  1. GADOVIST [Suspect]
     Active Substance: GADOBUTROL
     Indication: MAGNETIC RESONANCE IMAGING
     Dosage: 0.5 ML OF 1.0 MMOL/MML, I.E. 0.5 MMOL)
     Route: 037
     Dates: start: 201709, end: 201709
  2. VISIPAQUE [Concomitant]
     Active Substance: IODIXANOL
     Indication: MAGNETIC RESONANCE IMAGING
     Dosage: 270 MG I/ML, 3 ML

REACTIONS (3)
  - Post lumbar puncture syndrome [Recovered/Resolved]
  - Product use issue [None]
  - Pain [None]

NARRATIVE: CASE EVENT DATE: 20170918
